FAERS Safety Report 7030414-5 (Version None)
Quarter: 2010Q4

REPORT INFORMATION
  Report Type: 
  Country: None (occurrence: None)
  Receive Date: 20101001
  Receipt Date: 20100913
  Transmission Date: 20110411
  Serious: No
  Sender: FDA-Public Use
  Company Number: 2010-00798

PATIENT
  Sex: Female

DRUGS (2)
  1. ZICAM COLD REMEDY NASAL GEL [Suspect]
     Dosage: SUMMER 2008
     Dates: start: 20080101
  2. ZICAM COLD REMEDY GEL SWABS [Suspect]
     Dosage: SUMMER 2008
     Dates: start: 20080101

REACTIONS (3)
  - AGEUSIA [None]
  - ANOSMIA [None]
  - BURNING SENSATION [None]
